FAERS Safety Report 6504776-9 (Version None)
Quarter: 2009Q4

REPORT INFORMATION
  Report Type: 
  Country: None (occurrence: None)
  Receive Date: 20091216
  Receipt Date: 20091209
  Transmission Date: 20100525
  Serious: Yes (Other)
  Sender: FDA-Public Use
  Company Number: 2009SP033620

PATIENT
  Age: 32 Year
  Sex: Female

DRUGS (1)
  1. IMPLANON [Suspect]
     Indication: CONTRACEPTION
     Dosage: 1 DF
     Dates: start: 20080601, end: 20091129

REACTIONS (6)
  - BREAST MASS [None]
  - DEVICE DISLOCATION [None]
  - NAUSEA [None]
  - OVARIAN CYST [None]
  - VULVOVAGINAL DRYNESS [None]
  - WEIGHT INCREASED [None]
